FAERS Safety Report 15003900 (Version 3)
Quarter: 2018Q4

REPORT INFORMATION
  Report Type: Spontaneous
  Country: US (occurrence: US)
  Receive Date: 20180613
  Receipt Date: 20181008
  Transmission Date: 20190204
  Serious: Yes (Hospitalization, Other)
  Sender: FDA-Public Use
  Company Number: US-ROCHE-2138057

PATIENT
  Age: 43 Year
  Sex: Female
  Weight: 56.7 kg

DRUGS (9)
  1. TRINESSA [Concomitant]
     Active Substance: ETHINYL ESTRADIOL\NORGESTIMATE
     Route: 048
  2. OCREVUS [Suspect]
     Active Substance: OCRELIZUMAB
     Indication: RELAPSING-REMITTING MULTIPLE SCLEROSIS
     Route: 041
     Dates: start: 20180504
  3. OCREVUS [Suspect]
     Active Substance: OCRELIZUMAB
     Route: 042
     Dates: start: 20180518
  4. MELATONIN [Concomitant]
     Active Substance: MELATONIN
     Dosage: QHS
     Route: 065
  5. ETHINYL ESTRADIOL/NORGESTIMATE [Concomitant]
     Active Substance: ETHINYL ESTRADIOL\NORGESTIMATE
  6. CEFTRIAXONE. [Concomitant]
     Active Substance: CEFTRIAXONE
     Route: 042
  7. VITAMIN D3 [Concomitant]
     Active Substance: CHOLECALCIFEROL
     Route: 048
  8. TYLENOL [Concomitant]
     Active Substance: ACETAMINOPHEN
     Indication: ARTHROPATHY
     Route: 048
  9. VITAMIN D3 [Concomitant]
     Active Substance: CHOLECALCIFEROL
     Dosage: DAILY
     Route: 065

REACTIONS (2)
  - Viral upper respiratory tract infection [Recovered/Resolved]
  - Pyelonephritis [Recovered/Resolved]

NARRATIVE: CASE EVENT DATE: 20180518
